FAERS Safety Report 5617388-6 (Version None)
Quarter: 2008Q1

REPORT INFORMATION
  Report Type: 
  Country: None (occurrence: None)
  Receive Date: 20080207
  Receipt Date: 20070822
  Transmission Date: 20080703
  Serious: Yes (Disabling)
  Sender: FDA-Public Use
  Company Number: A0668125A

PATIENT
  Age: 56 Year
  Sex: Female

DRUGS (6)
  1. PAXIL [Suspect]
     Indication: DEPRESSION
     Route: 048
     Dates: start: 20020101
  2. LOVASTATIN [Concomitant]
  3. ALLEGRA D 24 HOUR [Concomitant]
  4. NAPROSYN SODIUM [Concomitant]
  5. ACTONEL [Concomitant]
  6. MULTI-VITAMIN [Concomitant]

REACTIONS (3)
  - PARAESTHESIA [None]
  - TINNITUS [None]
  - WITHDRAWAL SYNDROME [None]
